FAERS Safety Report 25180632 (Version 1)
Quarter: 2025Q2

REPORT INFORMATION
  Report Type: Spontaneous
  Country: HK (occurrence: HK)
  Receive Date: 20250409
  Receipt Date: 20250409
  Transmission Date: 20250717
  Serious: Yes (Hospitalization)
  Sender: EISAI
  Company Number: HK-Eisai-EC-2025-186752

PATIENT
  Sex: Female
  Weight: 50 kg

DRUGS (2)
  1. LECANEMAB [Suspect]
     Active Substance: LECANEMAB
     Indication: Cognitive disorder
     Dates: start: 20250214, end: 202503
  2. LECANEMAB [Suspect]
     Active Substance: LECANEMAB
     Dosage: 4TH INFUSION
     Dates: start: 202503, end: 202503

REACTIONS (1)
  - Amyloid related imaging abnormality-oedema/effusion [Recovering/Resolving]

NARRATIVE: CASE EVENT DATE: 20250327
